FAERS Safety Report 9055725 (Version 1)
Quarter: 2013Q1

REPORT INFORMATION
  Report Type: Report from Study
  Country: GB (occurrence: GB)
  Receive Date: 20130206
  Receipt Date: 20130206
  Transmission Date: 20140127
  Serious: Yes (Hospitalization)
  Sender: FDA-Public Use
  Company Number: GB-ROCHE-1185795

PATIENT
  Age: 74 None
  Sex: Female

DRUGS (10)
  1. RITUXIMAB [Suspect]
     Indication: RHEUMATOID ARTHRITIS
     Route: 065
     Dates: start: 20110608, end: 20120731
  2. METHOTREXATE [Concomitant]
     Route: 065
     Dates: start: 20110628
  3. CANDESARTAN [Concomitant]
     Route: 065
  4. OMEPRAZOLE [Concomitant]
     Route: 065
  5. RISEDRONATE [Concomitant]
     Route: 065
  6. ADCAL-D3 [Concomitant]
     Dosage: 2 TABLETS
     Route: 065
  7. SOLIFENACIN [Concomitant]
     Route: 065
  8. PARACETAMOL [Concomitant]
     Route: 065
  9. CODEINE PHOSPHATE [Concomitant]
     Route: 065
  10. ORAMORPH [Concomitant]
     Dosage: 5-10 MG
     Route: 048

REACTIONS (3)
  - Arthritis bacterial [Recovering/Resolving]
  - Joint swelling [Recovering/Resolving]
  - Iron deficiency anaemia [Unknown]
